FAERS Safety Report 7733515-9 (Version None)
Quarter: 2011Q3

REPORT INFORMATION
  Report Type: 
  Country: None (occurrence: None)
  Receive Date: 20110907
  Receipt Date: 20110907
  Transmission Date: 20111222
  Serious: No
  Sender: FDA-Public Use
  Company Number: None

PATIENT
  Age: 16 Year
  Sex: Male

DRUGS (1)
  1. LEXAPRO [Suspect]
     Indication: OBSESSIVE-COMPULSIVE DISORDER
     Dosage: 20MG
     Route: 048
     Dates: start: 20110720, end: 20110906

REACTIONS (13)
  - ERYTHEMA [None]
  - EMOTIONAL DISORDER [None]
  - SEROTONIN SYNDROME [None]
  - CONFUSIONAL STATE [None]
  - FLUSHING [None]
  - INSOMNIA [None]
  - HYPERHIDROSIS [None]
  - PYREXIA [None]
  - NAUSEA [None]
  - TREMOR [None]
  - DIZZINESS [None]
  - FALL [None]
  - OVERDOSE [None]
